FAERS Safety Report 5701698-8 (Version None)
Quarter: 2008Q2

REPORT INFORMATION
  Report Type: 
  Country: None (occurrence: None)
  Receive Date: 20080409
  Receipt Date: 20080409
  Transmission Date: 20081010
  Serious: Yes (Disabling)
  Sender: FDA-Public Use
  Company Number: None

PATIENT
  Age: 6 Year
  Sex: Male
  Weight: 27.2158 kg

DRUGS (2)
  1. SINGULAIR [Suspect]
     Indication: ASTHMA
     Dosage: 10 MG ONCE DAILY
     Dates: start: 20040416, end: 20071129
  2. SINGULAIR [Suspect]
     Indication: RHINITIS SEASONAL
     Dosage: 10 MG ONCE DAILY
     Dates: start: 20040416, end: 20071129

REACTIONS (5)
  - AGGRESSION [None]
  - ASPERGER'S DISORDER [None]
  - ATTENTION DEFICIT/HYPERACTIVITY DISORDER [None]
  - MOOD SWINGS [None]
  - SENSORY DISTURBANCE [None]
